FAERS Safety Report 11869688 (Version 1)
Quarter: 2015Q4

REPORT INFORMATION
  Report Type: Spontaneous
  Country: DE (occurrence: DE)
  Receive Date: 20151228
  Receipt Date: 20151228
  Transmission Date: 20160305
  Serious: Yes (Other)
  Sender: FDA-Public Use
  Company Number: DE-JNJFOC-20151214805

PATIENT
  Age: 68 Year
  Sex: Female
  Weight: 65 kg

DRUGS (8)
  1. IBUPROFEN (UNSPECIFIED) [Suspect]
     Active Substance: IBUPROFEN
     Route: 048
  2. IBUPROFEN (UNSPECIFIED) [Suspect]
     Active Substance: IBUPROFEN
     Indication: MIGRAINE
     Route: 048
  3. BISOPROLOL RATIOPHARM [Concomitant]
     Active Substance: BISOPROLOL
     Indication: ARRHYTHMIA
     Route: 048
  4. IMODIUM [Suspect]
     Active Substance: LOPERAMIDE HYDROCHLORIDE
     Route: 048
  5. IMODIUM [Suspect]
     Active Substance: LOPERAMIDE HYDROCHLORIDE
     Indication: PRODUCT USED FOR UNKNOWN INDICATION
     Dosage: APPROX. 3 TO 4 PER WEEK
     Route: 048
  6. TRIAMCINOLONE [Suspect]
     Active Substance: TRIAMCINOLONE
     Indication: BACK PAIN
     Route: 030
     Dates: start: 201411, end: 201503
  7. CETIRIZIN [Concomitant]
     Active Substance: CETIRIZINE HYDROCHLORIDE
     Indication: SEASONAL ALLERGY
     Route: 048
     Dates: start: 201502, end: 201505
  8. FAUSTAN [Concomitant]
     Indication: SLEEP DISORDER
     Route: 048

REACTIONS (10)
  - Skin reaction [Unknown]
  - Wound [None]
  - Haematoma [Not Recovered/Not Resolved]
  - Laceration [Not Recovered/Not Resolved]
  - Hyperaesthesia [Unknown]
  - Skin atrophy [Not Recovered/Not Resolved]
  - Skin exfoliation [Not Recovered/Not Resolved]
  - Impaired healing [Not Recovered/Not Resolved]
  - Skin oedema [Not Recovered/Not Resolved]
  - Skin abrasion [None]

NARRATIVE: CASE EVENT DATE: 201501
